FAERS Safety Report 5658451-3 (Version None)
Quarter: 2008Q1

REPORT INFORMATION
  Report Type: 
  Country: None (occurrence: None)
  Receive Date: 20080310
  Receipt Date: 20070220
  Transmission Date: 20080703
  Serious: No
  Sender: FDA-Public Use
  Company Number: US-BAYER-200710556BCC

PATIENT
  Sex: Female
  Weight: 59 kg

DRUGS (1)
  1. ALEVE [Suspect]
     Indication: FIBROMYALGIA
     Route: 048
     Dates: start: 19960101

REACTIONS (1)
  - DRUG INEFFECTIVE [None]
